FAERS Safety Report 23210510 (Version 1)
Quarter: 2023Q4

REPORT INFORMATION
  Report Type: Spontaneous
  Country: IN (occurrence: IN)
  Receive Date: 20231121
  Receipt Date: 20231121
  Transmission Date: 20240109
  Serious: Yes (Other)
  Sender: FDA-Public Use
  Company Number: IN-CHEPLA-2023014527

PATIENT
  Age: 30 Year
  Sex: Male

DRUGS (5)
  1. GANCICLOVIR [Suspect]
     Active Substance: GANCICLOVIR
     Indication: Cytomegalovirus infection
     Dosage: DAILY DOSE: 500 MILLIGRAM
  2. HUMAN IMMUNOGLOBULIN G [Concomitant]
     Active Substance: HUMAN IMMUNOGLOBULIN G
  3. TACROLIMUS [Concomitant]
     Active Substance: TACROLIMUS
     Indication: Drug therapy
  4. MYCOPHENOLATE MOFETIL [Concomitant]
     Active Substance: MYCOPHENOLATE MOFETIL
     Indication: Drug therapy
  5. PREDNISONE [Concomitant]
     Active Substance: PREDNISONE
     Indication: Drug therapy

REACTIONS (2)
  - Cardiac arrest [Unknown]
  - Depressed level of consciousness [Unknown]
